FAERS Safety Report 16998474 (Version 2)
Quarter: 2020Q1

REPORT INFORMATION
  Report Type: Spontaneous
  Country: NL (occurrence: NL)
  Receive Date: 20191106
  Receipt Date: 20200111
  Transmission Date: 20200409
  Serious: Yes (Other)
  Sender: FDA-Public Use
  Company Number: NL-TEVA-2019-NL-1131198

PATIENT
  Age: 78 Year
  Sex: Male
  Weight: 70 kg

DRUGS (3)
  1. LEVODOPA/CARBIDOPA 100/25 [Concomitant]
     Dosage: 4DD2 AND 1DD1, 1 DOSAGE FORMS PER 4 HOURS
  2. TOLTERODINE CAPSULE MET GEREGULEERDE AFGIFTE, 2 MG (MILLIGRAM) [Suspect]
     Active Substance: TOLTERODINE
     Indication: MICTURITION DISORDER
     Dosage: 1D1C, CONTROLLED RELEASE CAPSULE, 2 MG PER DAY
     Dates: start: 20190727, end: 201909
  3. MOVICOLON [Concomitant]
     Active Substance: POLYETHYLENE GLYCOL 3350\POTASSIUM CHLORIDE\SODIUM BICARBONATE\SODIUM CHLORIDE
     Dosage: IF NECESSARY, 1 DOSAGE FORMS

REACTIONS (1)
  - Erectile dysfunction [Recovered/Resolved]

NARRATIVE: CASE EVENT DATE: 20190728
